FAERS Safety Report 21633958 (Version 2)
Quarter: 2022Q4

REPORT INFORMATION
  Report Type: Spontaneous
  Country: US (occurrence: US)
  Receive Date: 20221123
  Receipt Date: 20221220
  Transmission Date: 20230113
  Serious: No
  Sender: FDA-Public Use
  Company Number: US-BRISTOL-MYERS SQUIBB COMPANY-2022-141979

PATIENT
  Age: 69 Year
  Sex: Male
  Weight: 74.84 kg

DRUGS (2)
  1. REVLIMID [Suspect]
     Active Substance: LENALIDOMIDE
     Indication: Plasma cell myeloma
     Dosage: FREQUENCY: 21D ON 7D OFF
     Route: 048
     Dates: start: 20220901
  2. REVLIMID [Suspect]
     Active Substance: LENALIDOMIDE
     Dosage: FREQUENCY: 21D ON 7D OFF
     Route: 048
     Dates: start: 20220928

REACTIONS (4)
  - Arthralgia [Unknown]
  - Musculoskeletal chest pain [Unknown]
  - Cough [Unknown]
  - Weight decreased [Unknown]
